FAERS Safety Report 12425849 (Version 1)
Quarter: 2016Q2

REPORT INFORMATION
  Report Type: Spontaneous
  Country: TW (occurrence: TW)
  Receive Date: 20160601
  Receipt Date: 20160601
  Transmission Date: 20160815
  Serious: No
  Sender: FDA-Public Use
  Company Number: TW-PROMETHEUS LABORATORIES-2015PL000246

PATIENT
  Age: 56 Year
  Sex: Male

DRUGS (2)
  1. PROLEUKIN [Suspect]
     Active Substance: ALDESLEUKIN
     Indication: CLEAR CELL RENAL CELL CARCINOMA
     Dosage: UNK UNKNOWN, SEE NARRATIVE
     Dates: start: 201209, end: 201212
  2. EVEROLIMUS [Suspect]
     Active Substance: EVEROLIMUS
     Indication: CLEAR CELL RENAL CELL CARCINOMA
     Dosage: UNK UNKNOWN, SEE NARRATIVE
     Dates: start: 201103, end: 201209

REACTIONS (2)
  - Malignant neoplasm progression [Unknown]
  - Clear cell renal cell carcinoma [Unknown]
